FAERS Safety Report 16431988 (Version 3)
Quarter: 2022Q3

REPORT INFORMATION
  Report Type: Spontaneous
  Country: US (occurrence: US)
  Receive Date: 20190614
  Receipt Date: 20220903
  Transmission Date: 20221027
  Serious: Yes (Other)
  Sender: FDA-Public Use
  Company Number: US-JNJFOC-20151100770

PATIENT
  Age: 7 Year
  Sex: Male

DRUGS (2)
  1. RISPERDAL [Suspect]
     Active Substance: RISPERIDONE
     Indication: Autism spectrum disorder
     Dosage: 0.5 - 1 MG
     Route: 048
     Dates: start: 20061101, end: 200612
  2. RISPERDAL [Suspect]
     Active Substance: RISPERIDONE
     Dosage: 0.5 - 1 MG
     Route: 048
     Dates: start: 200702, end: 200705

REACTIONS (7)
  - Obesity [Unknown]
  - Emotional disorder [Unknown]
  - Blood prolactin increased [Unknown]
  - Increased appetite [Unknown]
  - Enuresis [Unknown]
  - Gynaecomastia [Unknown]
  - Insomnia [Unknown]

NARRATIVE: CASE EVENT DATE: 20060101
